FAERS Safety Report 7391656-2 (Version None)
Quarter: 2011Q1

REPORT INFORMATION
  Report Type: 
  Country: None (occurrence: None)
  Receive Date: 20110324
  Receipt Date: 20110309
  Transmission Date: 20110831
  Serious: Yes (Hospitalization)
  Sender: FDA-Public Use
  Company Number: 2011MA001847

PATIENT
  Age: 61 Year
  Sex: Male

DRUGS (13)
  1. PANTOPRAZOLE [Concomitant]
  2. SPIRONOLACTONE [Suspect]
     Indication: HYPERTENSION
     Dosage: 50 MG, QD. PO
     Route: 048
  3. ENALAPRIL [Concomitant]
  4. ASPIRIN [Concomitant]
  5. INSULIN [Concomitant]
  6. AMITRIPTYLINE [Concomitant]
  7. ATORVASTATIN [Concomitant]
  8. CARBAMAZEPINE [Concomitant]
  9. MONONITRATE [Concomitant]
  10. ATENOLOL [Concomitant]
  11. ISOSORBIDE DINITRATE [Concomitant]
  12. CLONAZEPAM [Concomitant]
  13. FUROSEMIDE [Concomitant]

REACTIONS (5)
  - RENAL FAILURE ACUTE [None]
  - ELECTROCARDIOGRAM CHANGE [None]
  - HYPERKALAEMIA [None]
  - DIARRHOEA [None]
  - TACHYPNOEA [None]
